FAERS Safety Report 10961044 (Version 3)
Quarter: 2015Q2

REPORT INFORMATION
  Report Type: Spontaneous
  Country: DE (occurrence: DE)
  Receive Date: 20150327
  Receipt Date: 20150527
  Transmission Date: 20150821
  Serious: Yes (Hospitalization)
  Sender: FDA-Public Use
  Company Number: DE-SA-2015SA038282

PATIENT
  Age: 42 Year
  Sex: Male
  Weight: 119 kg

DRUGS (1)
  1. AUBAGIO [Suspect]
     Active Substance: TERIFLUNOMIDE
     Indication: MULTIPLE SCLEROSIS
     Route: 048

REACTIONS (4)
  - Thalamic infarction [Recovered/Resolved with Sequelae]
  - Vertebral artery occlusion [Recovered/Resolved with Sequelae]
  - Lateral medullary syndrome [Recovered/Resolved with Sequelae]
  - Cerebrovascular accident [Not Recovered/Not Resolved]

NARRATIVE: CASE EVENT DATE: 20150321
